FAERS Safety Report 10202403 (Version 2)
Quarter: 2014Q2

REPORT INFORMATION
  Report Type: Spontaneous
  Country: US (occurrence: US)
  Receive Date: 20140528
  Receipt Date: 20140617
  Transmission Date: 20141212
  Serious: Yes (Other)
  Sender: FDA-Public Use
  Company Number: US-B.I. PHARMACEUTICALS,INC./RIDGEFIELD-2014-BI-22913BP

PATIENT
  Age: 49 Year
  Sex: Male
  Weight: 74.8 kg

DRUGS (5)
  1. DULCOLAX TABLETS [Suspect]
     Indication: BOWEL PREPARATION
     Dosage: 10 MG
     Route: 048
     Dates: start: 20140519, end: 20140519
  2. DULCOLAX TABLETS [Suspect]
     Dosage: 20 MG
     Route: 048
     Dates: start: 20140521, end: 20140521
  3. BYSTOLIC [Concomitant]
     Indication: HYPERTENSION
     Route: 048
  4. SYTHROID [Concomitant]
     Indication: THYROID HORMONE REPLACEMENT THERAPY
     Route: 048
  5. METRONIDAZOLE [Concomitant]
     Route: 065
     Dates: start: 20140523

REACTIONS (5)
  - Colitis ischaemic [Not Recovered/Not Resolved]
  - Abdominal pain [Not Recovered/Not Resolved]
  - Rectal haemorrhage [Not Recovered/Not Resolved]
  - Gastrointestinal ulcer haemorrhage [Recovered/Resolved]
  - Off label use [Unknown]
